FAERS Safety Report 12215603 (Version 1)
Quarter: 2016Q1

REPORT INFORMATION
  Report Type: Spontaneous
  Country: JP (occurrence: JP)
  Receive Date: 20160328
  Receipt Date: 20160328
  Transmission Date: 20160526
  Serious: Yes (Other)
  Sender: FDA-Public Use
  Company Number: JP-SA-2016SA057156

PATIENT
  Age: 70 Year
  Sex: Male

DRUGS (11)
  1. IRINOTECAN HYDROCHLORIDE. [Concomitant]
     Active Substance: IRINOTECAN HYDROCHLORIDE
     Dates: start: 201306
  2. XELODA [Concomitant]
     Active Substance: CAPECITABINE
     Dates: start: 201011, end: 2013
  3. ELPLAT [Suspect]
     Active Substance: OXALIPLATIN
     Indication: RECTAL CANCER
     Route: 041
     Dates: start: 201504
  4. TS-1 [Concomitant]
     Active Substance: GIMERACIL\OTERACIL\TEGAFUR
     Dosage: STOP DATE: 2013
     Dates: start: 201306
  5. AVASTIN [Concomitant]
     Active Substance: BEVACIZUMAB
     Dates: start: 201011, end: 2015
  6. ELPLAT [Suspect]
     Active Substance: OXALIPLATIN
     Indication: RECTAL CANCER
     Route: 041
  7. VECTIBIX [Concomitant]
     Active Substance: PANITUMUMAB
     Dates: start: 201504
  8. ELPLAT [Suspect]
     Active Substance: OXALIPLATIN
     Indication: RECTAL CANCER
     Dosage: INJECTION
     Route: 065
     Dates: start: 201011
  9. CALCIUM LEVOFOLINATE [Suspect]
     Active Substance: LEVOLEUCOVORIN CALCIUM
     Indication: RECTAL CANCER
     Route: 041
  10. CALCIUM LEVOFOLINATE [Suspect]
     Active Substance: LEVOLEUCOVORIN CALCIUM
     Indication: RECTAL CANCER
     Route: 041
     Dates: start: 201504
  11. 5-FU [Concomitant]
     Active Substance: FLUOROURACIL
     Dates: start: 201504

REACTIONS (2)
  - Neuropathy peripheral [Unknown]
  - Shock [Unknown]
